FAERS Safety Report 20987523 (Version 1)
Quarter: 2022Q2

REPORT INFORMATION
  Report Type: Report from Study
  Country: DE (occurrence: DE)
  Receive Date: 20220621
  Receipt Date: 20220621
  Transmission Date: 20220721
  Serious: Yes (Other)
  Sender: FDA-Public Use
  Company Number: DE-SA-SAC20220616001477

PATIENT
  Age: 53 Year
  Sex: Male
  Weight: 81 kg

DRUGS (8)
  1. ISATUXIMAB [Suspect]
     Active Substance: ISATUXIMAB
     Indication: Plasma cell myeloma
     Dosage: 820 MG
     Route: 042
     Dates: start: 20210528, end: 20210528
  2. ISATUXIMAB [Suspect]
     Active Substance: ISATUXIMAB
     Dosage: 820 MG
     Route: 042
     Dates: start: 20220603, end: 20220603
  3. LENALIDOMIDE [Suspect]
     Active Substance: LENALIDOMIDE
     Indication: Plasma cell myeloma
     Dosage: 10 MG
     Route: 048
     Dates: start: 20200730, end: 20200730
  4. LENALIDOMIDE [Suspect]
     Active Substance: LENALIDOMIDE
     Dosage: 10 MG
     Route: 048
     Dates: start: 20220614, end: 20220614
  5. BORTEZOMIB [Concomitant]
     Active Substance: BORTEZOMIB
     Indication: Plasma cell myeloma
     Dosage: 1.82 MG
     Route: 058
     Dates: start: 20200730, end: 20200730
  6. BORTEZOMIB [Concomitant]
     Active Substance: BORTEZOMIB
     Dosage: 1.82 MG
     Route: 058
     Dates: start: 20200914, end: 20200914
  7. DEXAMETHASONE [Concomitant]
     Active Substance: DEXAMETHASONE
     Indication: Plasma cell myeloma
     Dosage: 20 MG
     Route: 042
     Dates: start: 20200730, end: 20200730
  8. DEXAMETHASONE [Concomitant]
     Active Substance: DEXAMETHASONE
     Dosage: 20 MG
     Route: 042
     Dates: start: 20210618, end: 20210618

REACTIONS (1)
  - COVID-19 [Not Recovered/Not Resolved]

NARRATIVE: CASE EVENT DATE: 20220614
